FAERS Safety Report 8028497-9 (Version None)
Quarter: 2012Q1

REPORT INFORMATION
  Report Type: 
  Country: None (occurrence: None)
  Receive Date: 20120106
  Receipt Date: 20120105
  Transmission Date: 20120608
  Serious: Yes (Hospitalization, Other)
  Sender: FDA-Public Use
  Company Number: CA-BAYER-2012-001270

PATIENT
  Age: 67 Year
  Sex: Female

DRUGS (7)
  1. SPIRIVA [Concomitant]
  2. ZOCOR [Concomitant]
  3. ACTONEL [Concomitant]
  4. AVELOX [Suspect]
  5. DAXAS [Concomitant]
  6. ADVAIR DISKUS 100/50 [Concomitant]
  7. VENTOLIN [Concomitant]

REACTIONS (4)
  - DISEASE PROGRESSION [None]
  - JOINT SWELLING [None]
  - CHRONIC OBSTRUCTIVE PULMONARY DISEASE [None]
  - RASH GENERALISED [None]
